FAERS Safety Report 11836977 (Version 1)
Quarter: 2015Q4

REPORT INFORMATION
  Report Type: Spontaneous
  Country: US (occurrence: US)
  Receive Date: 20151215
  Receipt Date: 20151215
  Transmission Date: 20160305
  Serious: Yes (Death)
  Sender: FDA-Public Use
  Company Number: US-INSYS THERAPEUTICS, INC-INS201512-000540

PATIENT
  Age: 38 Year
  Sex: Male

DRUGS (2)
  1. FENTANYL. [Suspect]
     Active Substance: FENTANYL
  2. HEROIN [Suspect]
     Active Substance: DIACETYLMORPHINE

REACTIONS (1)
  - Toxicity to various agents [Fatal]
